FAERS Safety Report 4595834-7 (Version None)
Quarter: 2005Q1

REPORT INFORMATION
  Report Type: 
  Country: None (occurrence: None)
  Receive Date: 20050224
  Receipt Date: 20050209
  Transmission Date: 20050727
  Serious: Yes (Life-Threatening, Hospitalization, Disabling)
  Sender: FDA-Public Use
  Company Number: CA_050207739

PATIENT
  Age: 24 Year
  Sex: Female
  Weight: 58 kg

DRUGS (7)
  1. HUMATROPE [Suspect]
     Indication: TURNER'S SYNDROME
     Dosage: 0.05 MG/KG/6 WEEK
     Dates: start: 19890227, end: 19940430
  2. SYNTHROID [Concomitant]
  3. FLONASE [Concomitant]
  4. CETIRIZINE HCL [Concomitant]
  5. ALBUTEROL [Concomitant]
  6. FLOVENT [Concomitant]
  7. ORTHO TRI-CYCLEN [Concomitant]

REACTIONS (7)
  - BALANCE DISORDER [None]
  - CATHETER RELATED INFECTION [None]
  - CEREBRAL CYST [None]
  - DIZZINESS [None]
  - HEADACHE [None]
  - INTRACRANIAL PRESSURE INCREASED [None]
  - URINARY TRACT INFECTION [None]
